FAERS Safety Report 4311136-8 (Version None)
Quarter: 2004Q1

REPORT INFORMATION
  Report Type: 
  Country: None (occurrence: None)
  Receive Date: 20040302
  Receipt Date: 20040218
  Transmission Date: 20041129
  Serious: Yes (Life-Threatening, Other)
  Sender: FDA-Public Use
  Company Number: 2003126092

PATIENT
  Sex: Female

DRUGS (1)
  1. UNASYN [Suspect]
     Indication: LUNG INFECTION
     Dosage: 4.5 GRAM (TID), INTRAVENOUS
     Dates: start: 20031221, end: 20031221

REACTIONS (3)
  - ACUTE RESPIRATORY DISTRESS SYNDROME [None]
  - PNEUMONIA ASPIRATION [None]
  - SEPTIC SHOCK [None]
